FAERS Safety Report 5095133-3 (Version None)
Quarter: 2006Q3

REPORT INFORMATION
  Report Type: 
  Country: None (occurrence: None)
  Receive Date: 20060830
  Receipt Date: 20060818
  Transmission Date: 20061208
  Serious: No
  Sender: FDA-Public Use
  Company Number: 14624

PATIENT
  Sex: Male

DRUGS (3)
  1. FLUOROURACIL [Suspect]
     Indication: COLON CANCER
  2. LEUCOVORIN [Suspect]
     Indication: COLON CANCER
  3. ELOXATIN [Suspect]
     Indication: COLON CANCER

REACTIONS (1)
  - SENSORY LOSS [None]
